FAERS Safety Report 8588034-7 (Version None)
Quarter: 2012Q3

REPORT INFORMATION
  Report Type: 
  Country: None (occurrence: None)
  Receive Date: 20120813
  Receipt Date: 20120730
  Transmission Date: 20120928
  Serious: Yes (Death, Other)
  Sender: FDA-Public Use
  Company Number: BR-RANBAXY-2012R5-58795

PATIENT
  Sex: Male
  Weight: 95 kg

DRUGS (5)
  1. OXCARBAZEPINE [Suspect]
     Indication: MUSCLE SPASMS
  2. CAPTOPRIL [Concomitant]
     Indication: HYPERTENSION
     Dosage: 10 MG, BID
     Route: 065
  3. DIAZEPAM [Concomitant]
     Indication: ABDOMINAL PAIN UPPER
     Dosage: UNK
     Route: 065
  4. DIAZEPAM [Concomitant]
     Indication: MUSCLE SPASMS
  5. OXCARBAZEPINE [Suspect]
     Indication: ABDOMINAL PAIN UPPER
     Dosage: 600 MG, BID
     Route: 048
     Dates: start: 20120720

REACTIONS (2)
  - SWELLING FACE [None]
  - ABDOMINAL DISTENSION [None]
